FAERS Safety Report 11459090 (Version 1)
Quarter: 2015Q3

REPORT INFORMATION
  Report Type: Spontaneous
  Country: NL (occurrence: NL)
  Receive Date: 20150904
  Receipt Date: 20150904
  Transmission Date: 20151125
  Serious: Yes (Hospitalization)
  Sender: FDA-Public Use
  Company Number: NL-ASTRAZENECA-2015SE72691

PATIENT
  Age: 3931 Week
  Sex: Female

DRUGS (3)
  1. FASLODEX [Suspect]
     Active Substance: FULVESTRANT
     Indication: BREAST CANCER METASTATIC
     Dosage: 50 MG/ML WWSP 5ML 2X, EVERY FOUR WEEKS
     Route: 030
     Dates: start: 20150723
  2. FASLODEX [Suspect]
     Active Substance: FULVESTRANT
     Indication: BREAST CANCER METASTATIC
     Dosage: 50 MG/ML WWSP 5ML 2X, EVERY FOUR WEEKS
     Route: 030
     Dates: start: 20150529
  3. FASLODEX [Suspect]
     Active Substance: FULVESTRANT
     Indication: BREAST CANCER METASTATIC
     Dosage: 50 MG/ML WWSP 5ML 2X, EVERY FOUR WEEKS
     Route: 030
     Dates: start: 20150626

REACTIONS (1)
  - Cardiac failure [Unknown]
